FAERS Safety Report 24041127 (Version 1)
Quarter: 2024Q3

REPORT INFORMATION
  Report Type: Spontaneous
  Country: US (occurrence: None)
  Receive Date: 20240701
  Receipt Date: 20240701
  Transmission Date: 20241016
  Serious: Yes (Other)
  Sender: Public
  Company Number: None

PATIENT
  Age: 43 Year
  Sex: Female
  Weight: 64.35 kg

DRUGS (9)
  1. QELBREE [Suspect]
     Active Substance: VILOXAZINE HYDROCHLORIDE
     Indication: Attention deficit hyperactivity disorder
     Dosage: I CAPSULE ORAL?
     Route: 048
     Dates: start: 20240627, end: 20240628
  2. TOPIRAMATE [Concomitant]
     Active Substance: TOPIRAMATE
  3. rizatriptran [Concomitant]
  4. albutral [Concomitant]
  5. VITAMINS [Concomitant]
     Active Substance: VITAMINS
  6. MAGNESIUM [Concomitant]
     Active Substance: MAGNESIUM
  7. VITAMIN D3 [Concomitant]
     Active Substance: CHOLECALCIFEROL
  8. JWH-018 [Concomitant]
     Active Substance: JWH-018
  9. METHYLCOBALAMIN [Concomitant]
     Active Substance: METHYLCOBALAMIN

REACTIONS (9)
  - Malaise [None]
  - Chills [None]
  - Pain [None]
  - Decreased appetite [None]
  - Retching [None]
  - Diarrhoea [None]
  - Suicidal ideation [None]
  - Migraine [None]
  - Vomiting [None]

NARRATIVE: CASE EVENT DATE: 20240627
